FAERS Safety Report 24283030 (Version 4)
Quarter: 2025Q4

REPORT INFORMATION
  Report Type: Spontaneous
  Country: JP (occurrence: JP)
  Receive Date: 20240904
  Receipt Date: 20251230
  Transmission Date: 20260117
  Serious: Yes (Death, Life-Threatening, Hospitalization)
  Sender: BAYER HEALTHCARE PHARMACEUTICALS INC.
  Company Number: JP-BAYER-2024A126348

PATIENT
  Age: 75 Year
  Sex: Male

DRUGS (11)
  1. NUBEQA [Suspect]
     Active Substance: DAROLUTAMIDE
     Indication: Hormone-dependent prostate cancer
     Dosage: 1200 MG/DAY
     Dates: start: 20240709, end: 20240902
  2. NUBEQA [Suspect]
     Active Substance: DAROLUTAMIDE
     Indication: Metastases to bone
  3. NUBEQA [Suspect]
     Active Substance: DAROLUTAMIDE
     Indication: Metastases to lymph nodes
  4. DOCETAXEL [Suspect]
     Active Substance: DOCETAXEL
     Indication: Hormone-dependent prostate cancer
     Dosage: 70 MG/M2, Q3WK, 6 COURSES
     Dates: start: 20240723, end: 20240813
  5. DOCETAXEL [Suspect]
     Active Substance: DOCETAXEL
     Indication: Metastases to bone
     Dosage: SECOND CYCLE
  6. DOCETAXEL [Suspect]
     Active Substance: DOCETAXEL
     Indication: Metastases to lymph nodes
  7. RELUGOLIX [Suspect]
     Active Substance: RELUGOLIX
     Indication: Hormone-dependent prostate cancer
     Route: 048
  8. RELUGOLIX [Suspect]
     Active Substance: RELUGOLIX
     Indication: Metastases to bone
  9. RELUGOLIX [Suspect]
     Active Substance: RELUGOLIX
     Indication: Metastases to lymph nodes
  10. PREDNISOLONE [Suspect]
     Active Substance: PREDNISOLONE
     Indication: Chemotherapy side effect prophylaxis
     Dosage: 10 MG/DAY
     Route: 048
  11. GRANULOCYTE COLONY-STIMULATING FACTOR NOS [Concomitant]
     Active Substance: GRANULOCYTE COLONY-STIMULATING FACTOR NOS
     Indication: Prophylaxis

REACTIONS (4)
  - Pneumocystis jirovecii pneumonia [Fatal]
  - Respiratory failure [Fatal]
  - Immunodeficiency [Fatal]
  - Decreased appetite [Recovering/Resolving]

NARRATIVE: CASE EVENT DATE: 20240101
